FAERS Safety Report 4698759-1 (Version None)
Quarter: 2005Q2

REPORT INFORMATION
  Report Type: 
  Country: None (occurrence: None)
  Receive Date: 20050621
  Receipt Date: 20040825
  Transmission Date: 20051028
  Serious: Yes (Hospitalization)
  Sender: FDA-Public Use
  Company Number: PHEH2004US09239

PATIENT
  Age: 76 Year
  Sex: Female

DRUGS (7)
  1. EXELON [Suspect]
     Indication: DEMENTIA ALZHEIMER'S TYPE
     Dosage: 1.5 MG, BID; 3 MG
     Dates: start: 20040701, end: 20040823
  2. EXELON [Suspect]
     Indication: DEMENTIA ALZHEIMER'S TYPE
     Dosage: 1.5 MG, BID; 3 MG
     Dates: start: 20040823
  3. ACETYLSALICYLIC ACID SRT [Concomitant]
  4. FOSAMAX [Concomitant]
  5. HYDROCHLOROTHIAZIDE [Concomitant]
  6. NAMENDA (MEMANTINE HYDROCHLORIDE) [Concomitant]
  7. ARICEPT [Concomitant]

REACTIONS (5)
  - ABASIA [None]
  - FEELING ABNORMAL [None]
  - FEELING COLD [None]
  - SYNCOPE [None]
  - URINARY TRACT INFECTION [None]
